FAERS Safety Report 26191415 (Version 1)
Quarter: 2025Q4

REPORT INFORMATION
  Report Type: Spontaneous
  Country: MY (occurrence: MY)
  Receive Date: 20251223
  Receipt Date: 20251223
  Transmission Date: 20260118
  Serious: Yes (Death, Life-Threatening, Other)
  Sender: ASTELLAS
  Company Number: MY-ASTELLAS-2025-AER-071465

PATIENT
  Age: 42 Year
  Sex: Female

DRUGS (9)
  1. TACROLIMUS [Suspect]
     Active Substance: TACROLIMUS
     Indication: Lupus nephritis
     Route: 065
  2. TACROLIMUS [Suspect]
     Active Substance: TACROLIMUS
     Indication: Systemic lupus erythematosus
  3. TACROLIMUS [Suspect]
     Active Substance: TACROLIMUS
     Indication: Cushingoid
  4. MYCOPHENOLATE MOFETIL [Concomitant]
     Active Substance: MYCOPHENOLATE MOFETIL
     Indication: Lupus nephritis
     Route: 065
  5. MYCOPHENOLATE MOFETIL [Concomitant]
     Active Substance: MYCOPHENOLATE MOFETIL
     Indication: Systemic lupus erythematosus
  6. MYCOPHENOLATE MOFETIL [Concomitant]
     Active Substance: MYCOPHENOLATE MOFETIL
     Indication: Cushingoid
  7. PREDNISOLONE [Concomitant]
     Active Substance: PREDNISOLONE
     Indication: Lupus nephritis
     Route: 065
  8. PREDNISOLONE [Concomitant]
     Active Substance: PREDNISOLONE
     Indication: Systemic lupus erythematosus
  9. PREDNISOLONE [Concomitant]
     Active Substance: PREDNISOLONE
     Indication: Cushingoid

REACTIONS (7)
  - Disseminated tuberculosis [Fatal]
  - Meningitis tuberculous [Fatal]
  - Intestinal tuberculosis [Fatal]
  - Colitis [Fatal]
  - Gastrointestinal haemorrhage [Fatal]
  - Nosocomial infection [Fatal]
  - Sepsis [Fatal]
